FAERS Safety Report 8491970 (Version 2)
Quarter: 2013Q2

REPORT INFORMATION
  Report Type: Spontaneous
  Country: US (occurrence: None)
  Receive Date: 20120321
  Receipt Date: 20120713
  Transmission Date: 20140414
  Serious: No
  Sender: FDA-Public Use
  Company Number: PHHY2011US14795

PATIENT
  Sex: 0

DRUGS (1)
  1. ILARIS [Suspect]
     Dosage: SUBCUTANEOUS
     Route: 058

REACTIONS (1)
  - INCORRECT DOSE ADMINISTERED [None]
